FAERS Safety Report 9556244 (Version 1)
Quarter: 2013Q3

REPORT INFORMATION
  Report Type: Spontaneous
  Country: US (occurrence: None)
  Receive Date: 20130906
  Receipt Date: 20130906
  Transmission Date: 20140515
  Serious: Yes (Other)
  Sender: FDA-Public Use
  Company Number: 163-POMAL-13063727

PATIENT
  Age: 70 Year
  Sex: Female
  Weight: 73.5 kg

DRUGS (5)
  1. POMALYST [Suspect]
     Indication: PLASMA CELL MYELOMA
     Dosage: 4 MG, 1 IN 1 D, PO
     Route: 048
     Dates: start: 20130522
  2. VITAMIN D (ERGOCALCIFEROL) [Concomitant]
  3. TUMS (CALCIUM CARBONATE) [Concomitant]
  4. PREDNISONE (PREDNISONE) [Concomitant]
  5. VALACYCLOVIR HCL (VALACICLOVIR HYDROCHLORIDE) [Concomitant]

REACTIONS (2)
  - Full blood count decreased [None]
  - Fatigue [None]
